FAERS Safety Report 6152133-X (Version None)
Quarter: 2009Q2

REPORT INFORMATION
  Report Type: 
  Country: None (occurrence: None)
  Receive Date: 20090410
  Receipt Date: 20090401
  Transmission Date: 20091009
  Serious: Yes (Death)
  Sender: FDA-Public Use
  Company Number: US-SANOFI-SYNTHELABO-A03200901425

PATIENT
  Age: 23 Month
  Sex: Male

DRUGS (4)
  1. METHADONE HCL [Suspect]
     Indication: INTENTIONAL DRUG MISUSE
     Dosage: FOUR METHADONE PILLS IN SEPERATE DOSES, CRUSHED, AND TAKEN ON THE SAME DAY AS ONE ZOLPIDEM NOS
     Route: 048
     Dates: start: 20090317
  2. METHADONE HCL [Suspect]
     Dosage: CRUSHED PILLS SOMETIMES MIXED IN GATORADE
     Route: 048
  3. AMBIEN [Suspect]
     Indication: INTENTIONAL DRUG MISUSE
     Dosage: CRUSHED PILLS SOMETIMES MIXED IN GATORADE
     Route: 048
  4. AMBIEN [Suspect]
     Dosage: ONE CRUSHED PILL TAKEN ON THE SAME DAY AS METHADONE
     Route: 048
     Dates: start: 20090317

REACTIONS (5)
  - INTENTIONAL OVERDOSE [None]
  - OFF LABEL USE [None]
  - UNRESPONSIVE TO STIMULI [None]
  - VICTIM OF HOMICIDE [None]
  - WRONG TECHNIQUE IN DRUG USAGE PROCESS [None]
